FAERS Safety Report 21964273 (Version 2)
Quarter: 2024Q1

REPORT INFORMATION
  Report Type: Report from Study
  Country: MX (occurrence: MX)
  Receive Date: 20230207
  Receipt Date: 20240123
  Transmission Date: 20240409
  Serious: Yes (Disabling, Other)
  Sender: FDA-Public Use
  Company Number: MX-002147023-NVSC2023MX026586

PATIENT
  Age: 26 Year
  Sex: Male

DRUGS (1)
  1. OFATUMUMAB [Suspect]
     Active Substance: OFATUMUMAB
     Indication: Multiple sclerosis
     Dosage: 1 DOSAGE FORM, QMO (20 MG)
     Route: 058
     Dates: start: 20221118

REACTIONS (5)
  - Central nervous system lesion [Not Recovered/Not Resolved]
  - Uhthoff^s phenomenon [Unknown]
  - Bone marrow infiltration [Not Recovered/Not Resolved]
  - Extensor plantar response [Unknown]
  - Romberg test positive [Unknown]

NARRATIVE: CASE EVENT DATE: 20230117
